FAERS Safety Report 4523387-8 (Version None)
Quarter: 2004Q4

REPORT INFORMATION
  Report Type: 
  Country: None (occurrence: None)
  Receive Date: 20041210
  Receipt Date: 20030609
  Transmission Date: 20050328
  Serious: Yes (Hospitalization, Disabling)
  Sender: FDA-Public Use
  Company Number: US-MERCK-0306USA01133

PATIENT
  Age: 56 Year
  Sex: Male
  Weight: 91 kg

DRUGS (26)
  1. PROPECIA [Concomitant]
     Route: 065
  2. ATENOLOL [Concomitant]
     Route: 065
     Dates: start: 19970401
  3. NORCO [Concomitant]
     Route: 065
     Dates: start: 20000203
  4. CHLORTHALIDONE [Concomitant]
     Route: 065
  5. CELEBREX [Concomitant]
     Route: 065
     Dates: start: 19990728, end: 20000201
  6. CELEBREX [Concomitant]
     Route: 065
     Dates: start: 20010621
  7. CYCLOBENZAPRINE HYDROCHLORIDE [Concomitant]
     Route: 065
  8. ULTRAM [Concomitant]
     Route: 065
  9. HYDROCODONE HYDROCHLORIDE [Concomitant]
     Route: 065
  10. [THERAPY UNSPECIFIED] [Concomitant]
     Route: 065
     Dates: start: 19990101
  11. TENORMIN [Concomitant]
     Route: 065
  12. AVANDIA [Concomitant]
     Route: 065
  13. GLUCOVANCE [Concomitant]
     Route: 065
     Dates: start: 20000101
  14. HYGROTON [Concomitant]
     Route: 065
     Dates: end: 20000215
  15. CARDIZEM [Concomitant]
     Route: 065
     Dates: start: 19990101
  16. ALTACE [Concomitant]
     Route: 065
  17. ASPIRIN [Concomitant]
     Route: 065
  18. VIOXX [Suspect]
     Indication: BACK PAIN
     Route: 048
     Dates: start: 19991122, end: 20001105
  19. VIOXX [Suspect]
     Route: 048
     Dates: start: 20000606, end: 20010501
  20. VIOXX [Suspect]
     Route: 048
     Dates: start: 20010629
  21. VIOXX [Suspect]
     Route: 065
     Dates: start: 20010526, end: 20010621
  22. VIOXX [Suspect]
     Indication: OSTEOARTHRITIS
     Route: 048
     Dates: start: 19991122, end: 20001105
  23. VIOXX [Suspect]
     Route: 048
     Dates: start: 20000606, end: 20010501
  24. VIOXX [Suspect]
     Route: 048
     Dates: start: 20010629
  25. VIOXX [Suspect]
     Route: 065
     Dates: start: 20010526, end: 20010621
  26. DIOVAN [Concomitant]
     Route: 065
     Dates: start: 20000801, end: 20010501

REACTIONS (48)
  - ABDOMINAL HERNIA [None]
  - ACUTE CORONARY SYNDROME [None]
  - ACUTE MYOCARDIAL INFARCTION [None]
  - ANGINA PECTORIS [None]
  - ANORECTAL DISORDER [None]
  - AORTIC DISORDER [None]
  - APHTHOUS STOMATITIS [None]
  - APNOEA [None]
  - ARTERIAL DISORDER [None]
  - ARTHRALGIA [None]
  - ARTHRITIS [None]
  - ATELECTASIS [None]
  - BACK PAIN [None]
  - CARDIAC VALVE DISEASE [None]
  - CORONARY ARTERY ATHEROSCLEROSIS [None]
  - CORONARY ARTERY DISEASE [None]
  - CORONARY ARTERY OCCLUSION [None]
  - CORONARY ARTERY RESTENOSIS [None]
  - CORONARY ARTERY STENOSIS [None]
  - DIABETES MELLITUS [None]
  - DIVERTICULITIS [None]
  - DYSPNOEA [None]
  - EMOTIONAL DISTRESS [None]
  - ERECTILE DYSFUNCTION [None]
  - FACET JOINT SYNDROME [None]
  - HAND FRACTURE [None]
  - HOARSENESS [None]
  - HYPERLIPIDAEMIA [None]
  - HYPERTENSION [None]
  - INSOMNIA [None]
  - INTERVERTEBRAL DISC PROTRUSION [None]
  - LOCALISED OSTEOARTHRITIS [None]
  - LUMBAR SPINAL STENOSIS [None]
  - LUNG DISORDER [None]
  - MUSCLE DISORDER [None]
  - MUSCLE STRAIN [None]
  - MYOCARDIAL ISCHAEMIA [None]
  - NERVOUSNESS [None]
  - PAIN IN EXTREMITY [None]
  - PLEURAL EFFUSION [None]
  - PNEUMOTHORAX [None]
  - RAYNAUD'S PHENOMENON [None]
  - RESPIRATORY FAILURE [None]
  - SCIATICA [None]
  - SNORING [None]
  - SOMNOLENCE [None]
  - THROMBOSIS [None]
  - VENTRICULAR HYPOKINESIA [None]
